FAERS Safety Report 6194089-X (Version None)
Quarter: 2009Q2

REPORT INFORMATION
  Report Type: 
  Country: None (occurrence: None)
  Receive Date: 20090514
  Receipt Date: 20090504
  Transmission Date: 20091009
  Serious: Yes (Hospitalization, Other)
  Sender: FDA-Public Use
  Company Number: GXKR2009IR05378

PATIENT
  Age: 19 Year
  Sex: Male

DRUGS (1)
  1. TRAMADOL HCL [Suspect]
     Dosage: 100 MG, BID

REACTIONS (10)
  - CONFUSIONAL STATE [None]
  - DRUG ABUSE [None]
  - GRAND MAL CONVULSION [None]
  - HYPOREFLEXIA [None]
  - INTENTIONAL OVERDOSE [None]
  - MIOSIS [None]
  - RENAL FAILURE ACUTE [None]
  - RHABDOMYOLYSIS [None]
  - SINUS TACHYCARDIA [None]
  - SUICIDE ATTEMPT [None]
